FAERS Safety Report 6556852-2 (Version None)
Quarter: 2010Q1

REPORT INFORMATION
  Report Type: 
  Country: None (occurrence: None)
  Receive Date: 20100128
  Receipt Date: 20100121
  Transmission Date: 20100710
  Serious: Yes (Hospitalization, Other)
  Sender: FDA-Public Use
  Company Number: PHHO2009US11870

PATIENT
  Sex: Female
  Weight: 79 kg

DRUGS (1)
  1. CERTICAN [Suspect]
     Indication: RENAL TRANSPLANT
     Dosage: UNK
     Route: 048
     Dates: start: 20050509

REACTIONS (5)
  - ABDOMINAL ADHESIONS [None]
  - COLECTOMY [None]
  - LAPAROSCOPIC SURGERY [None]
  - LARGE INTESTINE ANASTOMOSIS [None]
  - SCAR [None]
